FAERS Safety Report 8605166-5 (Version None)
Quarter: 2012Q3

REPORT INFORMATION
  Report Type: 
  Country: None (occurrence: None)
  Receive Date: 20120820
  Receipt Date: 20120815
  Transmission Date: 20120928
  Serious: Yes (Hospitalization)
  Sender: FDA-Public Use
  Company Number: GB-PFIZER INC-2012199412

PATIENT
  Age: 31 Year
  Sex: Female

DRUGS (1)
  1. VARENICLINE [Suspect]
     Indication: SMOKING CESSATION THERAPY
     Dosage: TITRATED
     Route: 048
     Dates: start: 20120621

REACTIONS (7)
  - ROAD TRAFFIC ACCIDENT [None]
  - NECK PAIN [None]
  - DISTURBANCE IN ATTENTION [None]
  - PARANOIA [None]
  - LETHARGY [None]
  - FEELING HOT [None]
  - FATIGUE [None]
